FAERS Safety Report 15557749 (Version 2)
Quarter: 2018Q4

REPORT INFORMATION
  Report Type: Spontaneous
  Country: NO (occurrence: NO)
  Receive Date: 20181027
  Receipt Date: 20181212
  Transmission Date: 20190205
  Serious: Yes (Other)
  Sender: FDA-Public Use
  Company Number: NO-ROCHE-2206258

PATIENT
  Sex: Male

DRUGS (4)
  1. REMICADE [Concomitant]
     Active Substance: INFLIXIMAB
  2. MABTHERA [Suspect]
     Active Substance: RITUXIMAB
     Route: 058
     Dates: start: 20180827
  3. MABTHERA [Suspect]
     Active Substance: RITUXIMAB
     Indication: PLASMA CELL MYELOMA
     Route: 058
  4. MABTHERA [Suspect]
     Active Substance: RITUXIMAB
     Indication: PLASMA CELL MYELOMA
     Route: 042
     Dates: start: 201810

REACTIONS (3)
  - Ascites [Not Recovered/Not Resolved]
  - Intentional product use issue [Unknown]
  - Off label use [Unknown]
